FAERS Safety Report 5895108-8 (Version None)
Quarter: 2008Q3

REPORT INFORMATION
  Report Type: 
  Country: None (occurrence: None)
  Receive Date: 20080924
  Receipt Date: 20080917
  Transmission Date: 20090109
  Serious: Yes (Hospitalization)
  Sender: FDA-Public Use
  Company Number: PHHO2008FR08944

PATIENT
  Sex: Female
  Weight: 75 kg

DRUGS (1)
  1. GLEEVEC [Suspect]
     Indication: CHRONIC MYELOID LEUKAEMIA
     Dosage: 400MG/DAY
     Route: 048
     Dates: start: 20080130, end: 20080716

REACTIONS (2)
  - AMAUROSIS [None]
  - TRANSIENT ISCHAEMIC ATTACK [None]
